FAERS Safety Report 10153691 (Version 2)
Quarter: 2014Q2

REPORT INFORMATION
  Report Type: Report from Study
  Country: NL (occurrence: NL)
  Receive Date: 20140506
  Receipt Date: 20140506
  Transmission Date: 20141212
  Serious: Yes (Death, Other)
  Sender: FDA-Public Use
  Company Number: NL-ROCHE-1356413

PATIENT
  Sex: 0

DRUGS (5)
  1. RITUXIMAB [Suspect]
     Indication: DIFFUSE LARGE B-CELL LYMPHOMA
     Route: 065
  2. CYCLOPHOSPHAMIDE [Suspect]
     Indication: DIFFUSE LARGE B-CELL LYMPHOMA
     Route: 065
  3. DOXORUBICIN [Suspect]
     Indication: DIFFUSE LARGE B-CELL LYMPHOMA
     Route: 065
  4. VINCRISTINE [Suspect]
     Indication: DIFFUSE LARGE B-CELL LYMPHOMA
     Route: 065
  5. PREDNISOLONE [Suspect]
     Indication: DIFFUSE LARGE B-CELL LYMPHOMA
     Route: 065

REACTIONS (13)
  - Sepsis [Fatal]
  - Pneumonia [Fatal]
  - Ileus [Fatal]
  - Febrile neutropenia [Unknown]
  - Infection [Unknown]
  - Cardiotoxicity [Unknown]
  - Pulmonary toxicity [Unknown]
  - Embolism venous [Unknown]
  - Haematotoxicity [Unknown]
  - Urinary tract infection [Unknown]
  - Herpes zoster [Unknown]
  - Gastrointestinal toxicity [Unknown]
  - Malaise [Unknown]
